FAERS Safety Report 16844661 (Version 1)
Quarter: 2019Q4

REPORT INFORMATION
  Report Type: Spontaneous
  Country: CN (occurrence: CN)
  Receive Date: 20190924
  Receipt Date: 20190924
  Transmission Date: 20200122
  Serious: No
  Sender: FDA-Public Use
  Company Number: None

PATIENT
  Age: 32 Year
  Sex: Female
  Weight: 45 kg

DRUGS (1)
  1. XULANE [Suspect]
     Active Substance: ETHINYL ESTRADIOL\NORELGESTROMIN
     Indication: POLYCYSTIC OVARIES
     Dosage: ?          QUANTITY:3 PATCH(ES);OTHER FREQUENCY:ONCE A WEEK;?
     Route: 062
     Dates: start: 20190907, end: 20190923

REACTIONS (6)
  - Application site pruritus [None]
  - Hypersensitivity [None]
  - Application site erythema [None]
  - Application site inflammation [None]
  - Application site pain [None]
  - Sensitive skin [None]

NARRATIVE: CASE EVENT DATE: 20190907
